FAERS Safety Report 8585251-7 (Version None)
Quarter: 2012Q3

REPORT INFORMATION
  Report Type: 
  Country: None (occurrence: None)
  Receive Date: 20120810
  Receipt Date: 20120808
  Transmission Date: 20120928
  Serious: Yes (Hospitalization, Other)
  Sender: FDA-Public Use
  Company Number: PHHY2011CA27881

PATIENT
  Sex: Male

DRUGS (6)
  1. SANDOSTATIN LAR [Suspect]
     Dosage: 30 MG, EVERY 4 WEEKS
     Route: 030
     Dates: start: 20110128
  2. ZOFRAN [Concomitant]
     Dosage: 8 MG, PRN
  3. SANDOSTATIN LAR [Suspect]
     Dosage: 30 MG, EVERY 4 WEEKS
     Route: 030
  4. TEMODAL [Concomitant]
  5. SANDOSTATIN LAR [Suspect]
     Indication: NEUROENDOCRINE CARCINOMA
     Dosage: 30 MG, QMO
     Route: 030
     Dates: start: 20110128
  6. CHEMOTHERAPEUTICS [Concomitant]

REACTIONS (12)
  - THIRST [None]
  - FLATULENCE [None]
  - WEIGHT DECREASED [None]
  - NEOPLASM MALIGNANT [None]
  - FATIGUE [None]
  - HEART RATE IRREGULAR [None]
  - DEHYDRATION [None]
  - DIARRHOEA [None]
  - BLOOD PRESSURE INCREASED [None]
  - HORMONE LEVEL ABNORMAL [None]
  - NAUSEA [None]
  - HYPERGLYCAEMIA [None]
